FAERS Safety Report 10230926 (Version 1)
Quarter: 2014Q2

REPORT INFORMATION
  Report Type: Spontaneous
  Country: US (occurrence: None)
  Receive Date: 20140610
  Receipt Date: 20140610
  Transmission Date: 20141212
  Serious: Yes (Disabling)
  Sender: FDA-Public Use
  Company Number: None

PATIENT
  Age: 56 Year
  Sex: Male
  Weight: 81.65 kg

DRUGS (6)
  1. SLIM TRIM U [Suspect]
     Indication: OBESITY
     Dosage: 2 PILLS
     Route: 048
     Dates: start: 20140324, end: 20140402
  2. SIBUTRAMINE [Suspect]
  3. MICARDIS [Concomitant]
  4. SYNTHROID [Concomitant]
  5. BABY ASPIRIN [Concomitant]
  6. ZINC [Concomitant]

REACTIONS (2)
  - Erectile dysfunction [None]
  - Dysuria [None]
